FAERS Safety Report 12637484 (Version 1)
Quarter: 2016Q3

REPORT INFORMATION
  Report Type: Spontaneous
  Country: US (occurrence: US)
  Receive Date: 20160809
  Receipt Date: 20160809
  Transmission Date: 20161109
  Serious: No
  Sender: FDA-Public Use
  Company Number: US-BEH-2016062873

PATIENT
  Sex: Female
  Weight: 95 kg

DRUGS (55)
  1. PRIVIGEN [Suspect]
     Active Substance: HUMAN IMMUNOGLOBULIN G
     Indication: IMMUNODEFICIENCY
     Route: 042
     Dates: start: 20151211
  2. DIPHENHYDRAMINE. [Concomitant]
     Active Substance: DIPHENHYDRAMINE
  3. LACTATED RINGERS [Concomitant]
     Active Substance: CALCIUM CHLORIDE\POTASSIUM CHLORIDE\SODIUM CHLORIDE\SODIUM LACTATE
  4. XOPENEX [Concomitant]
     Active Substance: LEVALBUTEROL HYDROCHLORIDE
  5. SINGULAIR [Concomitant]
     Active Substance: MONTELUKAST SODIUM
  6. LYBREL [Concomitant]
     Active Substance: ETHINYL ESTRADIOL\LEVONORGESTREL
  7. IPRATROP-ALBUTER [Concomitant]
  8. MONTELUKAST [Concomitant]
     Active Substance: MONTELUKAST SODIUM
  9. MUCINEX [Concomitant]
     Active Substance: GUAIFENESIN
  10. BUDESONIDE. [Concomitant]
     Active Substance: BUDESONIDE
  11. NAMENDA [Concomitant]
     Active Substance: MEMANTINE HYDROCHLORIDE
  12. MELATONIN [Concomitant]
     Active Substance: MELATONIN
  13. CRANBERRY. [Concomitant]
     Active Substance: CRANBERRY
  14. CLINDA-BENZO [Concomitant]
  15. PRIVIGEN [Suspect]
     Active Substance: HUMAN IMMUNOGLOBULIN G
     Indication: IMMUNODEFICIENCY COMMON VARIABLE
     Route: 042
     Dates: start: 20151211
  16. EPIPEN [Concomitant]
     Active Substance: EPINEPHRINE
  17. OXYTOCIN. [Concomitant]
     Active Substance: OXYTOCIN
  18. LEVOTHYROXINE. [Concomitant]
     Active Substance: LEVOTHYROXINE
  19. NORCO [Concomitant]
     Active Substance: ACETAMINOPHEN\HYDROCODONE BITARTRATE
  20. BACLOFEN. [Concomitant]
     Active Substance: BACLOFEN
  21. TOPAMAX [Concomitant]
     Active Substance: TOPIRAMATE
  22. FROVA [Concomitant]
     Active Substance: FROVATRIPTAN SUCCINATE
  23. LAMICTAL [Concomitant]
     Active Substance: LAMOTRIGINE
  24. VENTOLIN [Concomitant]
     Active Substance: ALBUTEROL SULFATE
  25. OFLOXACIN. [Concomitant]
     Active Substance: OFLOXACIN
  26. PERCOCET [Concomitant]
     Active Substance: ACETAMINOPHEN\OXYCODONE HYDROCHLORIDE
  27. RITALIN [Concomitant]
     Active Substance: METHYLPHENIDATE HYDROCHLORIDE
  28. SINUS RINSE [Concomitant]
     Active Substance: SODIUM BICARBONATE\SODIUM CHLORIDE
  29. CYMBALTA [Concomitant]
     Active Substance: DULOXETINE HYDROCHLORIDE
  30. LORAZEPAM. [Concomitant]
     Active Substance: LORAZEPAM
  31. PROCHLORPERAZINE. [Concomitant]
     Active Substance: PROCHLORPERAZINE
  32. AMETHYST [Concomitant]
     Active Substance: ETHINYL ESTRADIOL\LEVONORGESTREL
  33. PLAQUENIL [Concomitant]
     Active Substance: HYDROXYCHLOROQUINE SULFATE
  34. LASIX [Concomitant]
     Active Substance: FUROSEMIDE
  35. CIMETIDINE [Concomitant]
     Active Substance: CIMETIDINE
  36. ADAPALENE. [Concomitant]
     Active Substance: ADAPALENE
  37. VICODIN [Concomitant]
     Active Substance: ACETAMINOPHEN\HYDROCODONE BITARTRATE
  38. ZANTAC [Concomitant]
     Active Substance: RANITIDINE HYDROCHLORIDE
  39. ACETAMINOPHEN. [Concomitant]
     Active Substance: ACETAMINOPHEN
  40. NALTREXONE [Concomitant]
     Active Substance: NALTREXONE
  41. TOBRA [Concomitant]
  42. PRIVIGEN [Suspect]
     Active Substance: HUMAN IMMUNOGLOBULIN G
     Indication: HYPOTHYROIDISM
     Route: 042
     Dates: start: 20151211
  43. LIDOCAINE/PRILOCAINE [Concomitant]
     Active Substance: LIDOCAINE\PRILOCAINE
  44. FISH OIL [Concomitant]
     Active Substance: FISH OIL
  45. ACETYLCYSTEINE. [Concomitant]
     Active Substance: ACETYLCYSTEINE
  46. ACIDOPHILU [Concomitant]
  47. KETOROLAC [Concomitant]
     Active Substance: KETOROLAC\KETOROLAC TROMETHAMINE
  48. VANCO [Concomitant]
     Active Substance: VANCOMYCIN
  49. MIRTAZAPINE. [Concomitant]
     Active Substance: MIRTAZAPINE
  50. SODIUM CHLORIDE. [Concomitant]
     Active Substance: SODIUM CHLORIDE
  51. IBUPROFEN. [Concomitant]
     Active Substance: IBUPROFEN
  52. VITAMIN D [Concomitant]
     Active Substance: CHOLECALCIFEROL
  53. BUTALBITAL-ACET-CAFFEINE [Concomitant]
  54. AUGMENTIN [Concomitant]
     Active Substance: AMOXICILLIN\CLAVULANATE POTASSIUM
  55. BETHAMETH [Concomitant]

REACTIONS (3)
  - Nausea [Unknown]
  - Weight increased [Unknown]
  - Pain [Unknown]
